FAERS Safety Report 6545616-1 (Version None)
Quarter: 2010Q1

REPORT INFORMATION
  Report Type: 
  Country: None (occurrence: None)
  Receive Date: 20100121
  Receipt Date: 20090720
  Transmission Date: 20100710
  Serious: No
  Sender: FDA-Public Use
  Company Number: US-ALLERGAN-0910174US

PATIENT

DRUGS (10)
  1. OCUFEN [Suspect]
     Indication: MYDRIASIS
     Dosage: UNK, UNKNOWN
     Route: 047
  2. OCUFEN [Suspect]
     Indication: PREOPERATIVE CARE
  3. MYDRIACYL [Suspect]
     Indication: MYDRIASIS
     Dosage: UNK, UNKNOWN
     Route: 047
  4. MYDRIACYL [Suspect]
     Indication: PREOPERATIVE CARE
  5. CYCLOGYL [Suspect]
     Indication: MYDRIASIS
     Dosage: UNK, UNKNOWN
     Route: 047
  6. CYCLOGYL [Suspect]
     Indication: PREOPERATIVE CARE
  7. VIGAMOX [Suspect]
     Indication: MYDRIASIS
     Dosage: UNK, UNKNOWN
     Route: 047
  8. VIGAMOX [Suspect]
     Indication: PREOPERATIVE CARE
  9. AK-DILATE [Suspect]
     Indication: MYDRIASIS
     Dosage: UNK, UNKNOWN
     Route: 047
  10. AK-DILATE [Suspect]
     Indication: PREOPERATIVE CARE

REACTIONS (1)
  - EXTRAOCULAR MUSCLE PARESIS [None]
